FAERS Safety Report 15424747 (Version 1)
Quarter: 2018Q3

REPORT INFORMATION
  Report Type: Spontaneous
  Country: US (occurrence: US)
  Receive Date: 20180917
  Receipt Date: 20180917
  Transmission Date: 20181010
  Serious: Yes (Hospitalization)
  Sender: FDA-Public Use
  Company Number: None

PATIENT
  Age: 63 Year
  Sex: Female

DRUGS (13)
  1. ADMELOG [Concomitant]
     Active Substance: INSULIN LISPRO
  2. ATORVASTATIN [Concomitant]
     Active Substance: ATORVASTATIN
  3. LOSARTAN. [Concomitant]
     Active Substance: LOSARTAN
  4. BASAGLAR [Suspect]
     Active Substance: INSULIN GLARGINE
  5. FIRST?MOUTH W SUS [Concomitant]
  6. METFORMIN [Concomitant]
     Active Substance: METFORMIN HYDROCHLORIDE
  7. DULOXETINE. [Concomitant]
     Active Substance: DULOXETINE
  8. HYDROCHLOROT [Concomitant]
     Active Substance: HYDROCHLOROTHIAZIDE
  9. LETROZOLE. [Concomitant]
     Active Substance: LETROZOLE
  10. MORPHINE [Concomitant]
     Active Substance: MORPHINE
  11. VITAMIN D [Concomitant]
     Active Substance: CHOLECALCIFEROL
  12. IBRANCE [Suspect]
     Active Substance: PALBOCICLIB
     Indication: BREAST CANCER FEMALE
     Dosage: FOR 3 WEEKS
     Route: 048
     Dates: start: 20180710
  13. GABAPENTIN. [Concomitant]
     Active Substance: GABAPENTIN

REACTIONS (1)
  - Dehydration [None]
